FAERS Safety Report 9556543 (Version 2)
Quarter: 2013Q4

REPORT INFORMATION
  Report Type: Spontaneous
  Country: US (occurrence: US)
  Receive Date: 20130926
  Receipt Date: 20131025
  Transmission Date: 20140711
  Serious: No
  Sender: FDA-Public Use
  Company Number: US-PFIZER INC-2013274313

PATIENT
  Age: 90 Year
  Sex: Female
  Weight: 59.86 kg

DRUGS (1)
  1. FLECTOR [Suspect]
     Indication: PAIN
     Dosage: UNK, 2X/DAY (APPLY BID)
     Route: 061
     Dates: start: 201307

REACTIONS (2)
  - Product quality issue [Recovering/Resolving]
  - Paraesthesia [Recovering/Resolving]
